FAERS Safety Report 12657911 (Version 3)
Quarter: 2017Q2

REPORT INFORMATION
  Report Type: Report from Study
  Country: FR (occurrence: FR)
  Receive Date: 20160817
  Receipt Date: 20170420
  Transmission Date: 20170830
  Serious: Yes (Other)
  Sender: FDA-Public Use
  Company Number: FR-ROCHE-1814063

PATIENT
  Age: 18 Year
  Sex: Male

DRUGS (6)
  1. MINIRIN [Concomitant]
     Active Substance: DESMOPRESSIN ACETATE
     Indication: ENDOCRINE DISORDER
     Route: 048
     Dates: start: 20110101
  2. SOMATROPIN [Suspect]
     Active Substance: SOMATROPIN
     Indication: FAILURE TO THRIVE
  3. ANDROTARDYL [Concomitant]
     Active Substance: TESTOSTERONE
     Indication: ENDOCRINE DISORDER
     Route: 030
     Dates: start: 20130801
  4. LEVOTHYROX [Concomitant]
     Active Substance: LEVOTHYROXINE
     Indication: ENDOCRINE DISORDER
     Route: 048
     Dates: start: 20110101
  5. SOMATROPIN [Suspect]
     Active Substance: SOMATROPIN
     Indication: GROWTH HORMONE DEFICIENCY
     Dosage: STRENGTH: 10 MG PER 2 ML
     Route: 058
     Dates: start: 20140723, end: 20151209
  6. HYDROCORTISONE. [Concomitant]
     Active Substance: HYDROCORTISONE
     Indication: ENDOCRINE DISORDER
     Route: 048

REACTIONS (1)
  - Craniopharyngioma [Recovered/Resolved]

NARRATIVE: CASE EVENT DATE: 201511
